FAERS Safety Report 23911311 (Version 1)
Quarter: 2024Q2

REPORT INFORMATION
  Report Type: Spontaneous
  Country: FR (occurrence: FR)
  Receive Date: 20240528
  Receipt Date: 20240528
  Transmission Date: 20240716
  Serious: Yes (Hospitalization, Other)
  Sender: FDA-Public Use
  Company Number: None

PATIENT
  Age: 72 Year
  Sex: Female

DRUGS (21)
  1. BISOPROLOL FUMARATE [Suspect]
     Active Substance: BISOPROLOL FUMARATE
     Indication: Product used for unknown indication
     Dosage: 1.25 MILLIGRAM, QD
     Route: 048
  2. BISOPROLOL FUMARATE [Suspect]
     Active Substance: BISOPROLOL FUMARATE
     Dosage: 1 DOSAGE FORM, QD
     Route: 048
  3. PRAVASTATIN [Suspect]
     Active Substance: PRAVASTATIN
     Indication: Product used for unknown indication
     Dosage: 40 MILLIGRAM, QD
     Route: 048
  4. BROMAZEPAM [Suspect]
     Active Substance: BROMAZEPAM
     Indication: Product used for unknown indication
     Dosage: 6 MILLIGRAM, QD
     Route: 048
  5. BROMAZEPAM [Suspect]
     Active Substance: BROMAZEPAM
     Dosage: 1 DOSAGE FORM, QD
     Route: 048
  6. BROMAZEPAM [Suspect]
     Active Substance: BROMAZEPAM
     Dosage: UNK, BID
     Route: 048
  7. ZUCLOPENTHIXOL [Suspect]
     Active Substance: ZUCLOPENTHIXOL
     Indication: Product used for unknown indication
     Dosage: 10 MILLIGRAM, QD
     Route: 048
  8. ZUCLOPENTHIXOL [Suspect]
     Active Substance: ZUCLOPENTHIXOL
     Dosage: 1 DOSAGE FORM, QD
     Route: 048
  9. ZONEGRAN [Suspect]
     Active Substance: ZONISAMIDE
     Indication: Product used for unknown indication
     Dosage: 300 MILLIGRAM, QD
     Route: 048
  10. ZONEGRAN [Suspect]
     Active Substance: ZONISAMIDE
     Dosage: 3 DOSAGE FORM, QD
     Route: 048
  11. EUPANTOL [Suspect]
     Active Substance: PANTOPRAZOLE SODIUM
     Indication: Product used for unknown indication
     Dosage: 20 MILLIGRAM, QD
     Route: 048
  12. EUPANTOL [Suspect]
     Active Substance: PANTOPRAZOLE SODIUM
     Dosage: 1 DOSAGE FORM, QD
     Route: 048
  13. CLOBAZAM [Suspect]
     Active Substance: CLOBAZAM
     Indication: Product used for unknown indication
     Dosage: 20 MILLIGRAM, QD
     Route: 048
  14. CLOBAZAM [Suspect]
     Active Substance: CLOBAZAM
     Dosage: 1 DOSAGE FORM, QD
     Route: 048
  15. ATROPA BELLADONNA\CAFFEINE\PHENOBARBITAL [Suspect]
     Active Substance: ATROPA BELLADONNA\CAFFEINE\PHENOBARBITAL
     Indication: Product used for unknown indication
     Dosage: 65 MILLIGRAM, QD
     Route: 048
  16. ATROPA BELLADONNA\CAFFEINE\PHENOBARBITAL [Suspect]
     Active Substance: ATROPA BELLADONNA\CAFFEINE\PHENOBARBITAL
     Dosage: 15 MILLIGRAM, QD, 15 MG X 65 MILLIGRAM, QD
     Route: 048
  17. ATROPA BELLADONNA\CAFFEINE\PHENOBARBITAL [Suspect]
     Active Substance: ATROPA BELLADONNA\CAFFEINE\PHENOBARBITAL
     Dosage: 50 MILLIGRAM, QD, 15 MG X 65 MILLIGRAM, QD
     Route: 048
  18. ELIQUIS [Suspect]
     Active Substance: APIXABAN
     Indication: Product used for unknown indication
     Dosage: 10 MILLIGRAM, QD (5MGX2)
     Route: 048
  19. TEGRETOL [Suspect]
     Active Substance: CARBAMAZEPINE
     Indication: Product used for unknown indication
     Dosage: 1600 MILLIGRAM, QD (4 4 TABLETS/DAY))
     Route: 048
  20. TEGRETOL [Suspect]
     Active Substance: CARBAMAZEPINE
     Dosage: 8 DOSAGE FORM, QD
     Route: 048
  21. FERROUS FUMARATE [Concomitant]
     Active Substance: FERROUS FUMARATE
     Indication: Postmenopausal haemorrhage
     Dosage: UNK
     Route: 065

REACTIONS (3)
  - Neutropenia [Not Recovered/Not Resolved]
  - Clostridium difficile infection [Unknown]
  - Leukopenia [Unknown]

NARRATIVE: CASE EVENT DATE: 20240411
